FAERS Safety Report 11835510 (Version 1)
Quarter: 2015Q4

REPORT INFORMATION
  Report Type: Spontaneous
  Country: US (occurrence: US)
  Receive Date: 20151215
  Receipt Date: 20151215
  Transmission Date: 20160305
  Serious: No
  Sender: FDA-Public Use
  Company Number: US-BAYER-2015-489030

PATIENT
  Age: 75 Year
  Sex: Female
  Weight: 72.56 kg

DRUGS (1)
  1. MIRALAX [Suspect]
     Active Substance: POLYETHYLENE GLYCOL 3350
     Indication: CONSTIPATION
     Dosage: 1 DF, EVERY 48 HOURS
     Route: 048
     Dates: start: 201307

REACTIONS (3)
  - Product size issue [None]
  - Product use issue [None]
  - Product solubility abnormal [None]

NARRATIVE: CASE EVENT DATE: 201307
